FAERS Safety Report 21917527 (Version 1)
Quarter: 2023Q1

REPORT INFORMATION
  Report Type: Report from Study
  Country: GR (occurrence: GR)
  Receive Date: 20230126
  Receipt Date: 20230126
  Transmission Date: 20230417
  Serious: Yes (Other)
  Sender: FDA-Public Use
  Company Number: GR-ABBVIE-4283661

PATIENT
  Sex: Female

DRUGS (5)
  1. CARBIDOPA\LEVODOPA [Suspect]
     Active Substance: CARBIDOPA\LEVODOPA
     Indication: Parkinson^s disease
     Dosage: MORNING DOSE: 4.0 ML; CONTINUOUS RATE: 2.7 ML/H; EXTRA DOSE: 1.5 ML
     Route: 050
     Dates: start: 201009
  2. CARBIDOPA\LEVODOPA [Suspect]
     Active Substance: CARBIDOPA\LEVODOPA
  3. Nebivolol (Lobivon) [Concomitant]
     Indication: Product used for unknown indication
     Dosage: UNIT DOSE: 1.25 MG; FORM STRENGTH: 5 MG
     Route: 048
  4. Donepezil (Dementis) [Concomitant]
     Indication: Product used for unknown indication
     Route: 048
  5. SEROQUEL [Concomitant]
     Active Substance: QUETIAPINE FUMARATE
     Indication: Product used for unknown indication
     Route: 048

REACTIONS (1)
  - Partial seizures [Not Recovered/Not Resolved]
